FAERS Safety Report 22520556 (Version 1)
Quarter: 2023Q2

REPORT INFORMATION
  Report Type: Spontaneous
  Country: US (occurrence: US)
  Receive Date: 20230605
  Receipt Date: 20230605
  Transmission Date: 20230721
  Serious: Yes (Other)
  Sender: FDA-Public Use
  Company Number: US-ELI_LILLY_AND_COMPANY-US202305016028

PATIENT
  Age: 59 Year
  Sex: Female

DRUGS (2)
  1. HUMULIN N [Suspect]
     Active Substance: INSULIN HUMAN
     Indication: Product used for unknown indication
     Dosage: 5 U, BID
     Route: 058
  2. HUMULIN N [Suspect]
     Active Substance: INSULIN HUMAN
     Dosage: 5 U, OTHER (EVERY COUPLE OF DAYS)
     Route: 058

REACTIONS (13)
  - Cerebrovascular accident [Unknown]
  - Myocardial infarction [Unknown]
  - Suicide threat [Unknown]
  - Hypertension [Unknown]
  - Vomiting [Unknown]
  - Cardiac disorder [Unknown]
  - Illness [Unknown]
  - Mental disorder [Unknown]
  - Agoraphobia [Unknown]
  - Panic attack [Unknown]
  - Anger [Unknown]
  - Anxiety [Unknown]
  - Incorrect dose administered [Unknown]

NARRATIVE: CASE EVENT DATE: 20230524
